FAERS Safety Report 8257412-8 (Version None)
Quarter: 2012Q1

REPORT INFORMATION
  Report Type: 
  Country: None (occurrence: None)
  Receive Date: 20120330
  Receipt Date: 20120330
  Transmission Date: 20120608
  Serious: Yes (Disabling, Other)
  Sender: FDA-Public Use
  Company Number: None

PATIENT
  Sex: Female
  Weight: 64.4108 kg

DRUGS (2)
  1. LOSARTAN POTASSIUM [Suspect]
     Indication: HYPERTENSION
     Dosage: 100MG/ CUT TO 50MG + ALSO TO 75MG 1 PER DAY
     Dates: start: 20120201, end: 20120301
  2. LEXAPRO [Suspect]
     Indication: ANXIETY
     Dosage: 5MG 1 X PER NITE
     Dates: start: 20120201, end: 20120301

REACTIONS (6)
  - TINNITUS [None]
  - SPINAL COLUMN STENOSIS [None]
  - EYE DISORDER [None]
  - MACULAR DEGENERATION [None]
  - GLUCOSE TOLERANCE IMPAIRED [None]
  - ARTHRITIS [None]
